FAERS Safety Report 6504282-1 (Version None)
Quarter: 2009Q4

REPORT INFORMATION
  Report Type: 
  Country: None (occurrence: None)
  Receive Date: 20091217
  Receipt Date: 20091207
  Transmission Date: 20100525
  Serious: Yes (Hospitalization)
  Sender: FDA-Public Use
  Company Number: US-WATSON-2009-10486

PATIENT
  Age: 54 Year
  Sex: Female

DRUGS (5)
  1. PREDNISONE TAB [Suspect]
     Indication: INFLAMMATION
     Dosage: UNK
     Route: 048
     Dates: start: 20090501
  2. GLIPIZIDE [Concomitant]
     Indication: DIABETES MELLITUS
     Dosage: 5 MG, BID
     Route: 048
     Dates: start: 20090601
  3. METFORMIN HCL [Concomitant]
     Indication: DIABETES MELLITUS
     Dosage: 1000 MG, BID
     Route: 048
     Dates: start: 20090601
  4. NOVOLIN R [Concomitant]
     Indication: DIABETES MELLITUS
     Dosage: USE BY CHART
     Route: 065
     Dates: start: 20090601
  5. NOVOLIN N [Concomitant]
     Indication: DIABETES MELLITUS
     Dosage: INJECT 50 CC AT NIGHT
     Route: 065
     Dates: start: 20090601

REACTIONS (5)
  - BLOOD GLUCOSE INCREASED [None]
  - BLOOD URINE PRESENT [None]
  - CYSTITIS [None]
  - FULL BLOOD COUNT DECREASED [None]
  - TYPE 1 DIABETES MELLITUS [None]
